FAERS Safety Report 17267526 (Version 1)
Quarter: 2020Q1

REPORT INFORMATION
  Report Type: Spontaneous
  Country: US (occurrence: US)
  Receive Date: 20200114
  Receipt Date: 20200114
  Transmission Date: 20200409
  Serious: No
  Sender: FDA-Public Use
  Company Number: US-009507513-2001USA002214

PATIENT
  Age: 71 Year
  Sex: Female

DRUGS (6)
  1. SPIRIVA [Concomitant]
     Active Substance: TIOTROPIUM BROMIDE MONOHYDRATE
  2. FLUTICASONE. [Concomitant]
     Active Substance: FLUTICASONE
  3. DULERA [Suspect]
     Active Substance: FORMOTEROL FUMARATE DIHYDRATE\MOMETASONE FUROATE
     Dosage: 2 PUFFS A DAY
     Route: 055
     Dates: start: 20191219
  4. FEXOFENADINE HYDROCHLORIDE. [Concomitant]
     Active Substance: FEXOFENADINE HYDROCHLORIDE
  5. DULERA [Suspect]
     Active Substance: FORMOTEROL FUMARATE DIHYDRATE\MOMETASONE FUROATE
     Indication: ASTHMA
     Dosage: 1 PUFF A DAY
     Route: 055
     Dates: start: 2010, end: 20191219
  6. PROVENTIL [Concomitant]
     Active Substance: ALBUTEROL

REACTIONS (9)
  - Influenza [Recovering/Resolving]
  - Nasopharyngitis [Recovering/Resolving]
  - Product quality issue [Unknown]
  - Laryngitis [Unknown]
  - Poor quality device used [Unknown]
  - Vomiting [Recovering/Resolving]
  - Cough [Unknown]
  - Wheezing [Unknown]
  - Diarrhoea [Recovering/Resolving]

NARRATIVE: CASE EVENT DATE: 201912
